FAERS Safety Report 11316018 (Version 4)
Quarter: 2016Q3

REPORT INFORMATION
  Report Type: Report from Study
  Country: AT (occurrence: AT)
  Receive Date: 20150728
  Receipt Date: 20160711
  Transmission Date: 20161109
  Serious: Yes (Other)
  Sender: FDA-Public Use
  Company Number: AT-ROCHE-1610674

PATIENT
  Age: 71 Year
  Sex: Female

DRUGS (8)
  1. BLOPRESS [Concomitant]
     Active Substance: CANDESARTAN CILEXETIL
     Indication: HYPERTONIA
  2. CONCOR [Concomitant]
     Active Substance: BISOPROLOL FUMARATE
     Indication: HYPERTONIA
  3. MOLASSES [Concomitant]
     Indication: NUTRITIONAL SUPPLEMENTATION
  4. VEMURAFENIB [Suspect]
     Active Substance: VEMURAFENIB
     Route: 065
     Dates: start: 20150728, end: 20150809
  5. COBIMETINIB [Suspect]
     Active Substance: COBIMETINIB
     Indication: MALIGNANT MELANOMA
     Dosage: 3 TABLETS OF COBIMETINIB ONCE DAILY IN THE MORNING, NEXT THERAPY (DOSAGE UNKNOWN): 13/JUL/2015 TO 28
     Route: 048
     Dates: start: 20150703, end: 20150710
  6. COBIMETINIB [Suspect]
     Active Substance: COBIMETINIB
     Route: 065
     Dates: start: 20150728, end: 20150809
  7. VEMURAFENIB [Suspect]
     Active Substance: VEMURAFENIB
     Indication: MALIGNANT MELANOMA
     Dosage: 4 TABLETS OF 240MG MORNING AND EVENING - 4/0/4, NEXT THERAPY (DOSAGE UNKNOWN): 13/JUL/2015 TO 28/JUL
     Route: 048
     Dates: start: 20150703, end: 20150710
  8. LANSOBENE [Concomitant]
     Dosage: AS NEEDED
     Route: 065

REACTIONS (6)
  - Vertigo [Recovered/Resolved]
  - Nausea [Unknown]
  - Somnolence [Recovered/Resolved]
  - Vomiting [Unknown]
  - Rash generalised [Recovered/Resolved]
  - Vertigo [Unknown]

NARRATIVE: CASE EVENT DATE: 20150713
